FAERS Safety Report 9045077 (Version 1)
Quarter: 2013Q1

REPORT INFORMATION
  Report Type: Spontaneous
  Country: BR (occurrence: BR)
  Receive Date: 20130130
  Receipt Date: 20130130
  Transmission Date: 20140127
  Serious: Yes (Other)
  Sender: FDA-Public Use
  Company Number: PHHY2013BR007351

PATIENT
  Age: 66 Year
  Sex: Female
  Weight: 73 kg

DRUGS (4)
  1. FEMARA [Suspect]
     Indication: BREAST CANCER
     Dosage: 2.5 MG, UNK
     Route: 065
     Dates: start: 201212
  2. LOSARTAN [Suspect]
     Indication: ARRHYTHMIA
  3. AMLODIPINE [Suspect]
     Indication: ARRHYTHMIA
     Route: 065
  4. MODURETIC [Suspect]
     Indication: ARRHYTHMIA
     Route: 065

REACTIONS (2)
  - Blood pressure increased [Unknown]
  - Nervousness [Unknown]
